FAERS Safety Report 19153181 (Version 1)
Quarter: 2021Q2

REPORT INFORMATION
  Report Type: Spontaneous
  Country: US (occurrence: US)
  Receive Date: 20210418
  Receipt Date: 20210418
  Transmission Date: 20210717
  Serious: No
  Sender: FDA-Public Use
  Company Number: None

PATIENT
  Age: 36 Year
  Sex: Female

DRUGS (1)
  1. RHOFADE [Suspect]
     Active Substance: OXYMETAZOLINE HYDROCHLORIDE
     Indication: ROSACEA
     Dates: start: 20210412, end: 20210415

REACTIONS (3)
  - Erythema [None]
  - Paraesthesia [None]
  - Feeling hot [None]

NARRATIVE: CASE EVENT DATE: 20210416
